FAERS Safety Report 9849869 (Version 1)
Quarter: 2013Q4

REPORT INFORMATION
  Report Type: Spontaneous
  Country: US (occurrence: None)
  Receive Date: 20131226
  Receipt Date: 20131226
  Transmission Date: 20140711
  Serious: Yes (Other)
  Sender: FDA-Public Use
  Company Number: PHEH2012US023438

PATIENT
  Sex: Female
  Weight: 75.3 kg

DRUGS (1)
  1. ZOMETA (ZOLEDRONATE) UNKNOWN [Suspect]

REACTIONS (4)
  - Malignant neoplasm progression [None]
  - Musculoskeletal pain [None]
  - Chest pain [None]
  - Arthralgia [None]
